FAERS Safety Report 7992847 (Version 8)
Quarter: 2014Q1

REPORT INFORMATION
  Report Type: Report from Study
  Country: US (occurrence: US)
  Receive Date: 20110615
  Receipt Date: 20140327
  Transmission Date: 20141002
  Serious: Yes (Congenital Anomaly)
  Sender: FDA-Public Use
  Company Number: US-UCBSA-032294

PATIENT
  Age: 24 Hour
  Sex: Female
  Weight: 3.09 kg

DRUGS (4)
  1. KEPPRA [Suspect]
     Indication: EPILEPSY
     Route: 064
  2. FOLIC ACID [Concomitant]
     Indication: PREGNANCY
     Route: 064
  3. LEVOXYL [Concomitant]
     Indication: HYPOTHYROIDISM
     Route: 064
  4. PRENATAL VITAMINS [Concomitant]
     Indication: PREGNANCY
     Route: 064

REACTIONS (7)
  - Ventricular septal defect [Recovered/Resolved]
  - Congenital pulmonary artery anomaly [Unknown]
  - Mitral valve incompetence [Not Recovered/Not Resolved]
  - Tricuspid valve incompetence [Not Recovered/Not Resolved]
  - Jaundice [Unknown]
  - Feeding disorder [Unknown]
  - Foetal exposure during pregnancy [Recovered/Resolved]
